FAERS Safety Report 9162983 (Version 1)
Quarter: 2013Q1

REPORT INFORMATION
  Report Type: Report from Study
  Country: US (occurrence: US)
  Receive Date: 20130314
  Receipt Date: 20130314
  Transmission Date: 20140127
  Serious: No
  Sender: FDA-Public Use
  Company Number: US-009507513-1303USA006122

PATIENT
  Sex: Female

DRUGS (3)
  1. BOCEPREVIR [Suspect]
     Indication: HEPATITIS C
     Dosage: UNK
     Dates: start: 20111121
  2. RIBAVIRIN (WARRICK) [Suspect]
     Indication: CHRONIC HEPATITIS C
     Dosage: 1200MG, QD, DIVIDED DOSES
     Dates: start: 20111024
  3. PEGINTERFERON ALFA-2A [Suspect]
     Indication: CHRONIC HEPATITIS C
     Dosage: 180 MICROGRAM, QW
     Dates: start: 20111024

REACTIONS (1)
  - Therapeutic response decreased [Unknown]
